FAERS Safety Report 20832698 (Version 1)
Quarter: 2022Q2

REPORT INFORMATION
  Report Type: 
  Country: None (occurrence: None)
  Receive Date: 20220516
  Receipt Date: 20220516
  Transmission Date: 20220721
  Serious: No
  Sender: FDA-Public Use
  Company Number: US-ROCHE-2646896

PATIENT
  Weight: 55.388 kg

DRUGS (5)
  1. OCREVUS [Suspect]
     Active Substance: OCRELIZUMAB
     Dosage: SUBSEQUENT DOSE 600 MG EVERY 6 MONTHS
     Dates: start: 20190723
  2. OCREVUS [Suspect]
     Active Substance: OCRELIZUMAB
  3. OCREVUS [Suspect]
     Active Substance: OCRELIZUMAB
     Dates: start: 201906
  4. LAMOTRIGINE [Suspect]
     Active Substance: LAMOTRIGINE
  5. BENADRYL [Concomitant]
     Active Substance: DIPHENHYDRAMINE HYDROCHLORIDE

REACTIONS (15)
  - Cognitive disorder [None]
  - Suicide attempt [None]
  - Haemoglobin abnormal [None]
  - Herpes ophthalmic [None]
  - Mood altered [None]
  - Pruritus [None]
  - Polycystic ovaries [None]
  - Insomnia [None]
  - Suicidal ideation [None]
  - Drug ineffective [None]
  - Muscle atrophy [None]
  - Gait disturbance [None]
  - Immunoglobulins decreased [None]
  - Overdose [None]
  - Poor venous access [None]

NARRATIVE: CASE EVENT DATE: 20210101
